FAERS Safety Report 11772747 (Version 2)
Quarter: 2015Q4

REPORT INFORMATION
  Report Type: Report from Study
  Country: GB (occurrence: GB)
  Receive Date: 20151124
  Receipt Date: 20151204
  Transmission Date: 20160304
  Serious: Yes (Hospitalization)
  Sender: FDA-Public Use
  Company Number: PHHO2015GB019384

PATIENT
  Age: 80 Year
  Sex: Male
  Weight: 87.9 kg

DRUGS (17)
  1. BLINDED IDELALISIB [Suspect]
     Active Substance: IDELALISIB
     Dosage: 150 MG, UNK
     Route: 048
     Dates: start: 20151105
  2. ACICLOVIR [Concomitant]
     Active Substance: ACYCLOVIR
     Indication: CHRONIC LYMPHOCYTIC LEUKAEMIA
     Dosage: 400 MG, UNK
     Route: 048
     Dates: start: 20150924
  3. BLINDED NO TREATMENT RECEIVED [Suspect]
     Active Substance: INVESTIGATIONAL PRODUCT
     Indication: CHRONIC LYMPHOCYTIC LEUKAEMIA
     Dosage: 150 MG, UNK
     Route: 048
     Dates: start: 20150924, end: 20151020
  4. PHENIRAMINE [Concomitant]
     Active Substance: PHENIRAMINE
     Indication: CHRONIC LYMPHOCYTIC LEUKAEMIA
     Dosage: 10 MG, UNK
     Route: 042
     Dates: start: 20150924
  5. BLINDED IDELALISIB [Suspect]
     Active Substance: IDELALISIB
     Indication: CHRONIC LYMPHOCYTIC LEUKAEMIA
     Dosage: 150 MG, UNK
     Route: 048
     Dates: start: 20150924, end: 20151020
  6. HIDROCORTISON [Concomitant]
     Active Substance: HYDROCORTISONE
     Indication: CHRONIC LYMPHOCYTIC LEUKAEMIA
     Dosage: 100 MG, UNK
     Route: 042
     Dates: start: 20150924
  7. ALLOPURINOL. [Concomitant]
     Active Substance: ALLOPURINOL
     Indication: CHRONIC LYMPHOCYTIC LEUKAEMIA
     Dosage: 300 MG, UNK
     Route: 048
     Dates: start: 20150924
  8. OFATUMUMAB [Suspect]
     Active Substance: OFATUMUMAB
     Dosage: 300 MG, UNK
     Route: 042
     Dates: start: 20151105
  9. COMPARATOR CHLORAMBUCIL [Suspect]
     Active Substance: CHLORAMBUCIL
     Dosage: 20 MG, UNK
     Route: 048
     Dates: start: 20151105
  10. COMPARATOR CHLORAMBUCIL [Suspect]
     Active Substance: CHLORAMBUCIL
     Dosage: 20 MG, UNK
     Route: 048
     Dates: start: 20150924, end: 20151020
  11. ACE//PARACETAMOL [Concomitant]
     Active Substance: ACETAMINOPHEN
     Indication: CHRONIC LYMPHOCYTIC LEUKAEMIA
     Dosage: 1 G, UNK
     Route: 048
     Dates: start: 20150924
  12. METOCLOPRAMIDE. [Concomitant]
     Active Substance: METOCLOPRAMIDE
     Indication: CHRONIC LYMPHOCYTIC LEUKAEMIA
     Dosage: 8 MG, UNK
     Route: 048
     Dates: start: 20150924
  13. OFATUMUMAB [Suspect]
     Active Substance: OFATUMUMAB
     Indication: CHRONIC LYMPHOCYTIC LEUKAEMIA
     Dosage: 300 MG, UNK
     Route: 042
     Dates: start: 20150924, end: 20151020
  14. COTRIMOXAZOLE [Concomitant]
     Active Substance: SULFAMETHOXAZOLE\TRIMETHOPRIM
     Indication: CHRONIC LYMPHOCYTIC LEUKAEMIA
     Dosage: 480 MG, UNK
     Route: 048
     Dates: start: 20150924
  15. BLINDED PLACEBO [Suspect]
     Active Substance: INVESTIGATIONAL PRODUCT
     Indication: CHRONIC LYMPHOCYTIC LEUKAEMIA
     Dosage: 150 MG, UNK
     Route: 048
     Dates: start: 20150924, end: 20151020
  16. BLINDED NO TREATMENT RECEIVED [Suspect]
     Active Substance: INVESTIGATIONAL PRODUCT
     Dosage: 150 MG, UNK
     Route: 048
     Dates: start: 20151105
  17. BLINDED PLACEBO [Suspect]
     Active Substance: INVESTIGATIONAL PRODUCT
     Dosage: 150 MG, UNK
     Route: 048
     Dates: start: 20151105

REACTIONS (1)
  - Hyperkalaemia [Recovered/Resolved]

NARRATIVE: CASE EVENT DATE: 20151020
